FAERS Safety Report 16480418 (Version 1)
Quarter: 2019Q2

REPORT INFORMATION
  Report Type: Spontaneous
  Country: US (occurrence: US)
  Receive Date: 20190626
  Receipt Date: 20190626
  Transmission Date: 20190711
  Serious: No
  Sender: FDA-Public Use
  Company Number: US-ACTELION-A-NJ2019-191378

PATIENT
  Age: 47 Year
  Sex: Female
  Weight: 97.05 kg

DRUGS (2)
  1. VELETRI [Suspect]
     Active Substance: EPOPROSTENOL
     Indication: PULMONARY ARTERIAL HYPERTENSION
     Dosage: 10 NG/KG, PER MIN
     Route: 042
  2. VELETRI [Suspect]
     Active Substance: EPOPROSTENOL
     Dosage: 14 NG/KG, PER MIN
     Route: 042

REACTIONS (11)
  - Catheter management [Unknown]
  - Pain [Unknown]
  - Dyspnoea [Unknown]
  - Nausea [Unknown]
  - Device occlusion [Unknown]
  - Device alarm issue [Unknown]
  - Abdominal pain lower [Unknown]
  - Pain in jaw [Not Recovered/Not Resolved]
  - Constipation [Unknown]
  - Headache [Unknown]
  - Sleep disorder [Not Recovered/Not Resolved]

NARRATIVE: CASE EVENT DATE: 20190601
